FAERS Safety Report 5023686-X (Version None)
Quarter: 2006Q2

REPORT INFORMATION
  Report Type: 
  Country: None (occurrence: None)
  Receive Date: 20060606
  Receipt Date: 20050328
  Transmission Date: 20061013
  Serious: Yes (Hospitalization)
  Sender: FDA-Public Use
  Company Number: 225668

PATIENT
  Age: 66 Year
  Sex: Female
  Weight: 69.5 kg

DRUGS (3)
  1. MABTHERA (RITUXIMAB) CONC FOR SOLUTION FOR INFUSION [Suspect]
     Indication: NON-HODGKIN'S LYMPHOMA
     Dosage: 375 MG/M2, Q3W, INTRAVENOUS
     Route: 042
     Dates: start: 20050310
  2. FLUDARABINE [Suspect]
     Indication: NON-HODGKIN'S LYMPHOMA
     Dosage: 25 MG/M2, Q3W, INTRAVENOUS
     Route: 042
     Dates: start: 20050209
  3. CYCLOPHOSPHAMIDE [Suspect]
     Indication: NON-HODGKIN'S LYMPHOMA
     Dosage: 1000 MG/M2, Q3W, INTRAVENOUS
     Route: 042
     Dates: start: 20050209

REACTIONS (1)
  - FEBRILE NEUTROPENIA [None]
